FAERS Safety Report 6870137-6 (Version None)
Quarter: 2010Q3

REPORT INFORMATION
  Report Type: 
  Country: None (occurrence: None)
  Receive Date: 20100721
  Receipt Date: 20100714
  Transmission Date: 20110219
  Serious: Yes (Other)
  Sender: FDA-Public Use
  Company Number: 012098

PATIENT
  Age: 16 Year
  Sex: Female
  Weight: 75 kg

DRUGS (2)
  1. KEPPRA [Suspect]
     Indication: MYOCLONIC EPILEPSY
     Dosage: 1 G BID ORAL
     Route: 048
     Dates: start: 20070101, end: 20100407
  2. SUMATRIPTAN SUCCINATE [Suspect]
     Indication: MIGRAINE
     Dosage: ORAL
     Route: 048
     Dates: start: 20100407, end: 20100407

REACTIONS (5)
  - MIGRAINE [None]
  - PANCREATITIS ACUTE [None]
  - PARAESTHESIA [None]
  - THROMBOCYTOPENIA [None]
  - VOMITING [None]
